FAERS Safety Report 10571254 (Version 2)
Quarter: 2016Q2

REPORT INFORMATION
  Report Type: Spontaneous
  Country: US (occurrence: US)
  Receive Date: 20141107
  Receipt Date: 20160623
  Transmission Date: 20160815
  Serious: Yes (Hospitalization, Disabling, Other)
  Sender: FDA-Public Use
  Company Number: US-009507513-1411USA000520

PATIENT
  Sex: Female

DRUGS (2)
  1. FOSAMAX [Suspect]
     Active Substance: ALENDRONATE SODIUM
     Indication: OSTEOPOROSIS
     Dosage: 70 MG, QW
     Route: 048
     Dates: start: 1999, end: 2008
  2. FOSAMAX PLUS D [Suspect]
     Active Substance: ALENDRONATE SODIUM\CHOLECALCIFEROL
     Indication: OSTEOPOROSIS
     Dosage: 70 MG, QW
     Route: 048
     Dates: start: 2005, end: 2008

REACTIONS (10)
  - Femur fracture [Unknown]
  - Patella fracture [Unknown]
  - Foot fracture [Unknown]
  - Blood cholesterol increased [Unknown]
  - Fall [Unknown]
  - Back pain [Unknown]
  - Hypertension [Unknown]
  - Femur fracture [Unknown]
  - Upper limb fracture [Unknown]
  - Balance disorder [Not Recovered/Not Resolved]

NARRATIVE: CASE EVENT DATE: 2000
